FAERS Safety Report 24057962 (Version 1)
Quarter: 2024Q3

REPORT INFORMATION
  Report Type: Spontaneous
  Country: US (occurrence: US)
  Receive Date: 20240707
  Receipt Date: 20240707
  Transmission Date: 20241016
  Serious: No
  Sender: GLAXOSMITHKLINE
  Company Number: US-GSK-US2024AMR081225

PATIENT

DRUGS (1)
  1. NUCALA [Suspect]
     Active Substance: MEPOLIZUMAB
     Indication: Asthma-chronic obstructive pulmonary disease overlap syndrome
     Dosage: 100 MG, 4W
     Route: 058

REACTIONS (3)
  - Drug ineffective for unapproved indication [Unknown]
  - Product prescribing issue [Unknown]
  - Product use in unapproved indication [Unknown]
